FAERS Safety Report 6416057-2 (Version None)
Quarter: 2009Q4

REPORT INFORMATION
  Report Type: 
  Country: None (occurrence: None)
  Receive Date: 20091027
  Receipt Date: 20091014
  Transmission Date: 20100525
  Serious: Yes (Other)
  Sender: FDA-Public Use
  Company Number: FR-ELI_LILLY_AND_COMPANY-FR200910003481

PATIENT
  Sex: Male

DRUGS (1)
  1. PROZAC [Suspect]
     Dosage: UNK, UNKNOWN
     Dates: start: 20040101

REACTIONS (1)
  - DIABETES MELLITUS [None]
